FAERS Safety Report 18841690 (Version 1)
Quarter: 2021Q1

REPORT INFORMATION
  Report Type: Spontaneous
  Country: US (occurrence: US)
  Receive Date: 20210203
  Receipt Date: 20210203
  Transmission Date: 20210419
  Serious: No
  Sender: FDA-Public Use
  Company Number: US-MYLANLABS-2021M1005548

PATIENT
  Sex: Female
  Weight: 68 kg

DRUGS (1)
  1. PERFOROMIST [Suspect]
     Active Substance: FORMOTEROL FUMARATE DIHYDRATE
     Indication: CHRONIC OBSTRUCTIVE PULMONARY DISEASE
     Dosage: 20 MCG/2 ML, BID
     Route: 055

REACTIONS (2)
  - Drug ineffective [Not Recovered/Not Resolved]
  - Product delivery mechanism issue [Unknown]
